FAERS Safety Report 21132874 (Version 1)
Quarter: 2022Q3

REPORT INFORMATION
  Report Type: Spontaneous
  Country: PL (occurrence: PL)
  Receive Date: 20220726
  Receipt Date: 20220726
  Transmission Date: 20221027
  Serious: Yes (Hospitalization, Other)
  Sender: FDA-Public Use
  Company Number: PL-FreseniusKabi-FK202210304

PATIENT
  Age: 36 Year
  Sex: Female

DRUGS (12)
  1. OXALIPLATIN [Suspect]
     Active Substance: OXALIPLATIN
     Indication: Gastrointestinal adenocarcinoma
     Dosage: FIRST FOLFOX-4 CYCLE WAS ADMINISTERED
     Dates: start: 20210317
  2. OXALIPLATIN [Suspect]
     Active Substance: OXALIPLATIN
     Dosage: SECOND FOLFOX-4 CYCLE WAS ADMINISTERED
     Dates: start: 20210401
  3. FLUOROURACIL [Suspect]
     Active Substance: FLUOROURACIL
     Indication: Gastrointestinal adenocarcinoma
     Dosage: FIRST FOLFOX-4 CYCLE WAS ADMINISTERED
     Dates: start: 20210317
  4. FLUOROURACIL [Suspect]
     Active Substance: FLUOROURACIL
     Dosage: SECOND FOLFOX-4 CYCLE WAS ADMINISTERED
     Dates: start: 20210401
  5. LEUCOVORIN [Suspect]
     Active Substance: LEUCOVORIN
     Indication: Gastrointestinal adenocarcinoma
     Dosage: SECOND FOLFOX-4 CYCLE WAS ADMINISTERED
     Dates: start: 20210317
  6. LEUCOVORIN [Suspect]
     Active Substance: LEUCOVORIN
     Dosage: SECOND FOLFOX-4 CYCLE WAS ADMINISTERED
     Dates: start: 20210401
  7. TACROLIMUS [Concomitant]
     Active Substance: TACROLIMUS
     Indication: Immunosuppressant drug therapy
  8. TACROLIMUS [Concomitant]
     Active Substance: TACROLIMUS
  9. TACROLIMUS [Concomitant]
     Active Substance: TACROLIMUS
     Dosage: INCREASED FROM 5 MG/DAY TO 6 MG/DAY, AND THEN TO 7 MG/DAY UNTIL 11 MAY 2021 THEREAFTER, IT WAS SWITC
  10. MYCOPHENOLATE MOFETIL [Concomitant]
     Active Substance: MYCOPHENOLATE MOFETIL
     Indication: Immunosuppressant drug therapy
  11. PREDNISOLONE [Concomitant]
     Active Substance: PREDNISOLONE
     Indication: Immunosuppressant drug therapy
  12. PREDNISOLONE [Concomitant]
     Active Substance: PREDNISOLONE
     Dates: start: 20210310

REACTIONS (1)
  - Complications of transplanted kidney [Unknown]
